FAERS Safety Report 6820374-1 (Version None)
Quarter: 2010Q3

REPORT INFORMATION
  Report Type: 
  Country: None (occurrence: None)
  Receive Date: 20100707
  Receipt Date: 20100629
  Transmission Date: 20110219
  Serious: Yes (Life-Threatening, Other)
  Sender: FDA-Public Use
  Company Number: US-AMGEN-QUU416911

PATIENT
  Sex: Male

DRUGS (5)
  1. NPLATE [Suspect]
     Indication: IDIOPATHIC THROMBOCYTOPENIC PURPURA
     Dates: start: 20090709, end: 20100218
  2. UNSPECIFIED ANTINEOPLASTIC AGENT [Concomitant]
  3. IMMU-G [Concomitant]
     Dates: start: 20050401, end: 20080228
  4. RITUXIMAB [Concomitant]
     Dates: start: 20080228, end: 20090625
  5. CYCLOPHOSPHAMIDE [Concomitant]

REACTIONS (2)
  - B-CELL LYMPHOMA [None]
  - THROMBOCYTOPENIA [None]
